FAERS Safety Report 4935717-3 (Version None)
Quarter: 2006Q1

REPORT INFORMATION
  Report Type: 
  Country: None (occurrence: None)
  Receive Date: 20060307
  Receipt Date: 20051117
  Transmission Date: 20060701
  Serious: No
  Sender: FDA-Public Use
  Company Number: US-GLAXOSMITHKLINE-A0582742A

PATIENT
  Age: 69 Year
  Sex: Female

DRUGS (13)
  1. REQUIP [Suspect]
     Indication: RESTLESS LEGS SYNDROME
     Route: 048
     Dates: start: 20051104, end: 20051116
  2. SYNTHROID [Concomitant]
  3. LASIX [Concomitant]
  4. RHINOCORT [Concomitant]
  5. ZETIA [Concomitant]
  6. NEXIUM [Concomitant]
  7. ALLEGRA [Concomitant]
  8. ZANAFLEX [Concomitant]
  9. PREMARIN [Concomitant]
  10. SULINDAC [Concomitant]
  11. ULTRACET [Concomitant]
  12. DITROPAN XL [Concomitant]
  13. MULTI-VITAMIN [Concomitant]

REACTIONS (2)
  - ASTHENIA [None]
  - DYSPNOEA [None]
